FAERS Safety Report 5113154-9 (Version None)
Quarter: 2006Q3

REPORT INFORMATION
  Report Type: 
  Country: None (occurrence: None)
  Receive Date: 20060922
  Receipt Date: 20060912
  Transmission Date: 20061208
  Serious: Yes (Other)
  Sender: FDA-Public Use
  Company Number: CH-ABBOTT-06P-151-0343823-00

PATIENT
  Age: 19 Year
  Sex: Female

DRUGS (2)
  1. DEPAKENE [Suspect]
     Indication: DEPRESSION
     Route: 048
     Dates: start: 20050201, end: 20050801
  2. VENLAFAXINE HYDROCHLORIDE [Suspect]
     Indication: DEPRESSION
     Route: 048
     Dates: start: 20050201, end: 20050801

REACTIONS (3)
  - ABORTION SPONTANEOUS [None]
  - FOETAL GROWTH RETARDATION [None]
  - UNINTENDED PREGNANCY [None]
